FAERS Safety Report 5972162-6 (Version None)
Quarter: 2008Q4

REPORT INFORMATION
  Report Type: 
  Country: None (occurrence: None)
  Receive Date: 20081201
  Receipt Date: 20080829
  Transmission Date: 20090506
  Serious: No
  Sender: FDA-Public Use
  Company Number: US-TEVA-176922USA

PATIENT
  Age: 10 Year
  Sex: Male

DRUGS (1)
  1. SALBUTAMOL SULFATE INHALATION, 0.09 MG [Suspect]
     Indication: CROUP INFECTIOUS
     Dosage: 2 PUFFS EVERY 4 HOURS AS NEEDED
     Route: 055
     Dates: start: 20080801

REACTIONS (4)
  - DRUG INEFFECTIVE [None]
  - NAUSEA [None]
  - RETCHING [None]
  - VOMITING [None]
